FAERS Safety Report 7016376-5 (Version None)
Quarter: 2010Q3

REPORT INFORMATION
  Report Type: 
  Country: None (occurrence: None)
  Receive Date: 20100923
  Receipt Date: 20100908
  Transmission Date: 20110219
  Serious: Yes (Hospitalization)
  Sender: FDA-Public Use
  Company Number: 2010090037

PATIENT
  Age: 88 Year
  Sex: Male

DRUGS (7)
  1. TORSEMIDE [Suspect]
  2. ATACAND [Suspect]
     Dosage: ORAL
     Route: 048
     Dates: end: 20100331
  3. LASIX [Suspect]
     Dosage: ORAL
     Route: 048
  4. AVODART [Concomitant]
  5. ATORVASTATIN CALCIUM [Concomitant]
  6. METOPROLOL SUCCINATE [Concomitant]
  7. ASPIRIN [Concomitant]

REACTIONS (4)
  - CONDITION AGGRAVATED [None]
  - GASTROINTESTINAL DISORDER [None]
  - RENAL CYST [None]
  - RENAL FAILURE CHRONIC [None]
